FAERS Safety Report 4512194-8 (Version None)
Quarter: 2004Q4

REPORT INFORMATION
  Report Type: 
  Country: None (occurrence: None)
  Receive Date: 20041129
  Receipt Date: 20040916
  Transmission Date: 20050328
  Serious: Yes (Other)
  Sender: FDA-Public Use
  Company Number: PHNU2004DE03242

PATIENT
  Age: 45 Year
  Sex: Female

DRUGS (2)
  1. CO-DIOVAN [Suspect]
     Dosage: UNK, UNK
     Route: 065
     Dates: end: 20040101
  2. DIOVAN [Concomitant]
     Dosage: 1 DF, QD
     Route: 048
     Dates: start: 20040101

REACTIONS (3)
  - ALOPECIA [None]
  - AUTOIMMUNE THYROIDITIS [None]
  - HYPERTHYROIDISM [None]
